FAERS Safety Report 8514844-8 (Version None)
Quarter: 2012Q3

REPORT INFORMATION
  Report Type: 
  Country: None (occurrence: None)
  Receive Date: 20120717
  Receipt Date: 20120704
  Transmission Date: 20120928
  Serious: Yes (Death, Other)
  Sender: FDA-Public Use
  Company Number: JP-PFIZER INC-2012169207

PATIENT

DRUGS (1)
  1. AMIODARONE HCL [Suspect]
     Indication: TACHYCARDIA
     Dosage: UNK
     Route: 065

REACTIONS (2)
  - HYPOTHYROIDISM [None]
  - CARDIAC FAILURE [None]
